FAERS Safety Report 16369771 (Version 1)
Quarter: 2019Q2

REPORT INFORMATION
  Report Type: Spontaneous
  Country: US (occurrence: US)
  Receive Date: 20190530
  Receipt Date: 20190530
  Transmission Date: 20190711
  Serious: No
  Sender: FDA-Public Use
  Company Number: US-DRREDDYS-USA/USA/18/0104617

PATIENT
  Age: 54 Year
  Sex: Male
  Weight: 90.9 kg

DRUGS (4)
  1. FEXOFENADINE HCL [Suspect]
     Active Substance: FEXOFENADINE HYDROCHLORIDE
     Indication: HYPERSENSITIVITY
     Route: 065
  2. NEURONTIN [Suspect]
     Active Substance: GABAPENTIN
     Route: 065
  3. NEURONTIN [Suspect]
     Active Substance: GABAPENTIN
     Route: 065
  4. NEURONTIN [Suspect]
     Active Substance: GABAPENTIN
     Indication: RESTLESS LEGS SYNDROME
     Route: 065

REACTIONS (2)
  - Paranasal sinus discomfort [Unknown]
  - Dizziness [Unknown]

NARRATIVE: CASE EVENT DATE: 20181003
